FAERS Safety Report 4425199-2 (Version None)
Quarter: 2004Q3

REPORT INFORMATION
  Report Type: 
  Country: None (occurrence: None)
  Receive Date: 20040809
  Receipt Date: 20040728
  Transmission Date: 20050211
  Serious: No
  Sender: FDA-Public Use
  Company Number: 203174

PATIENT
  Age: 12 Year
  Sex: Male
  Weight: 31 kg

DRUGS (1)
  1. NUTROPIN AQ [Suspect]
     Indication: GROWTH HORMONE DEFICIENCY
     Dosage: 1.3 MG, QD, SUBCUTANEOUS
     Route: 058
     Dates: start: 20030624

REACTIONS (1)
  - IRIS CYST [None]
